FAERS Safety Report 6186169-X (Version None)
Quarter: 2009Q2

REPORT INFORMATION
  Report Type: 
  Country: None (occurrence: None)
  Receive Date: 20090511
  Receipt Date: 20090426
  Transmission Date: 20091009
  Serious: Yes (Hospitalization)
  Sender: FDA-Public Use
  Company Number: IT-GENENTECH-282565

PATIENT
  Sex: Female

DRUGS (1)
  1. MABTHERA [Suspect]
     Indication: T-CELL LYMPHOMA
     Dosage: UNK
     Route: 065
     Dates: start: 20090302, end: 20090302

REACTIONS (2)
  - BACK PAIN [None]
  - URTICARIA [None]
